FAERS Safety Report 18257801 (Version 2)
Quarter: 2020Q4

REPORT INFORMATION
  Report Type: Other
  Country: IT (occurrence: IT)
  Receive Date: 20200911
  Receipt Date: 20201019
  Transmission Date: 20210113
  Serious: Yes (Hospitalization)
  Sender: FDA-Public Use
  Company Number: IT-MACLEODS PHARMACEUTICALS US LTD-MAC2020027977

PATIENT

DRUGS (4)
  1. KEPPRA [Suspect]
     Active Substance: LEVETIRACETAM
     Indication: DRUG ABUSE
     Dosage: 10 DOSAGE FORM, SINGLE (TOTAL)
     Route: 048
     Dates: start: 20180305, end: 20180305
  2. PANTOPRAZOLE TABLET [Suspect]
     Active Substance: PANTOPRAZOLE
     Indication: DRUG ABUSE
     Dosage: 80 MILLIGRAM, SINGLE (TOTAL)
     Route: 048
     Dates: start: 20180305, end: 20180305
  3. CITALOPRAM [Concomitant]
     Active Substance: CITALOPRAM HYDROBROMIDE
     Indication: DEPRESSION
     Dosage: 7 GTT, QD (DROPS)
     Route: 048
  4. DEBRUM [Suspect]
     Active Substance: MEDAZEPAM\TRIMEBUTINE MALEATE
     Indication: DRUG ABUSE
     Dosage: 10 DOSAGE FORM, SINGLE (TOTAL)
     Route: 048
     Dates: start: 20180305, end: 20180305

REACTIONS (3)
  - Depressed mood [Recovering/Resolving]
  - Drug abuse [Recovering/Resolving]
  - Vertigo [Recovering/Resolving]

NARRATIVE: CASE EVENT DATE: 20180305
